FAERS Safety Report 21238376 (Version 3)
Quarter: 2022Q4

REPORT INFORMATION
  Report Type: Spontaneous
  Country: US (occurrence: US)
  Receive Date: 20220822
  Receipt Date: 20221223
  Transmission Date: 20230112
  Serious: Yes (Hospitalization, Other)
  Sender: FDA-Public Use
  Company Number: US-PHARMING-PHAUS2022000551

PATIENT

DRUGS (4)
  1. RUCONEST [Suspect]
     Active Substance: HUMAN C1-ESTERASE INHIBITOR
     Indication: Hereditary angioedema
     Dosage: 4200 IU, ONCE WEEKLY
     Route: 042
     Dates: start: 20211112
  2. RUCONEST [Suspect]
     Active Substance: HUMAN C1-ESTERASE INHIBITOR
     Dosage: 4200 IU, ONCE WEEKLY
     Route: 042
     Dates: start: 20211130
  3. RUCONEST [Suspect]
     Active Substance: HUMAN C1-ESTERASE INHIBITOR
     Dosage: 4200 IU, ONCE WEEKLY
     Route: 042
     Dates: start: 20160217
  4. TAKHZYRO [Concomitant]
     Active Substance: LANADELUMAB-FLYO
     Indication: Product used for unknown indication

REACTIONS (3)
  - Nephrolithiasis [Unknown]
  - Weight fluctuation [Unknown]
  - Intentional product use issue [Unknown]
